FAERS Safety Report 22285121 (Version 1)
Quarter: 2023Q2

REPORT INFORMATION
  Report Type: Spontaneous
  Country: US (occurrence: None)
  Receive Date: 20230503
  Receipt Date: 20230503
  Transmission Date: 20230722
  Serious: No
  Sender: FDA-Public Use
  Company Number: None

PATIENT
  Sex: Female

DRUGS (1)
  1. RINVOQ [Suspect]
     Active Substance: UPADACITINIB
     Indication: Psoriasis
     Dosage: FREQUENCY : DAILY;?
     Route: 048
     Dates: start: 20230320

REACTIONS (5)
  - Back pain [None]
  - Musculoskeletal stiffness [None]
  - Sensitivity to weather change [None]
  - Therapeutic product effect incomplete [None]
  - Myalgia [None]
